FAERS Safety Report 7636781-3 (Version None)
Quarter: 2011Q3

REPORT INFORMATION
  Report Type: 
  Country: None (occurrence: None)
  Receive Date: 20110726
  Receipt Date: 20110610
  Transmission Date: 20111222
  Serious: No
  Sender: FDA-Public Use
  Company Number: US-BAYER-2011-051212

PATIENT
  Age: 42 Year
  Sex: Male
  Weight: 100 kg

DRUGS (2)
  1. ADVIL [Concomitant]
     Dosage: UNK
     Dates: end: 20110610
  2. ALEVE (CAPLET) [Suspect]
     Indication: ANALGESIC THERAPY
     Dosage: 2 DF, ONCE
     Dates: start: 20110610

REACTIONS (3)
  - CHEST PAIN [None]
  - THROAT IRRITATION [None]
  - DYSPEPSIA [None]
